FAERS Safety Report 9430171 (Version 1)
Quarter: 2013Q3

REPORT INFORMATION
  Report Type: Spontaneous
  Country: GB (occurrence: GB)
  Receive Date: 20130730
  Receipt Date: 20130730
  Transmission Date: 20140515
  Serious: Yes (Other)
  Sender: FDA-Public Use
  Company Number: GB-TEVA-420708ISR

PATIENT
  Sex: Male
  Weight: 64 kg

DRUGS (3)
  1. METRONIDAZOLE [Suspect]
     Indication: ROSACEA
     Dosage: 1200 MILLIGRAM DAILY;
     Route: 048
     Dates: start: 20130704, end: 20130704
  2. SIMVASTATIN [Concomitant]
     Indication: HYPERCHOLESTEROLAEMIA
     Route: 048
  3. LISINOPRIL [Concomitant]
     Indication: HYPERTENSION
     Route: 048

REACTIONS (2)
  - Eye swelling [Recovering/Resolving]
  - Pruritus generalised [Recovering/Resolving]
